FAERS Safety Report 5075792-1 (Version None)
Quarter: 2006Q3

REPORT INFORMATION
  Report Type: 
  Country: None (occurrence: None)
  Receive Date: 20060809
  Receipt Date: 20060707
  Transmission Date: 20061208
  Serious: Yes (Other)
  Sender: FDA-Public Use
  Company Number: US-GLAXOSMITHKLINE-A0611458A

PATIENT
  Age: 74 Year
  Sex: Female

DRUGS (20)
  1. PAROXETINE HCL [Suspect]
     Indication: BIPOLAR DISORDER
     Dosage: 40MG PER DAY
     Route: 048
  2. PAXIL [Suspect]
     Indication: BIPOLAR DISORDER
     Route: 048
  3. STEROIDS (UNKNOWN) [Suspect]
     Indication: DRUG USE FOR UNKNOWN INDICATION
     Route: 065
  4. VICODIN [Suspect]
     Indication: DRUG USE FOR UNKNOWN INDICATION
     Route: 065
  5. DIOVAN [Concomitant]
  6. PLAVIX [Concomitant]
  7. FOLIC ACID [Concomitant]
  8. CALCIUM GLUCONATE [Concomitant]
  9. FISH OIL [Concomitant]
  10. MULTI-VITAMIN [Concomitant]
  11. ISOSORBIDE DINITRATE [Concomitant]
  12. TOPROL-XL [Concomitant]
  13. SYNTHROID [Concomitant]
  14. NEXIUM [Concomitant]
  15. ASPIRIN [Concomitant]
  16. FLONASE [Concomitant]
  17. ALPHAGAN [Concomitant]
  18. NITROGLYCERIN [Concomitant]
  19. ADVAIR DISKUS 100/50 [Concomitant]
     Indication: DRUG USE FOR UNKNOWN INDICATION
     Route: 055
  20. XANAX [Concomitant]

REACTIONS (2)
  - DRUG INEFFECTIVE [None]
  - PSYCHOTIC DISORDER [None]
